FAERS Safety Report 18706371 (Version 2)
Quarter: 2021Q1

REPORT INFORMATION
  Report Type: Spontaneous
  Country: US (occurrence: US)
  Receive Date: 20210106
  Receipt Date: 20210127
  Transmission Date: 20210419
  Serious: Yes (Other)
  Sender: FDA-Public Use
  Company Number: US-TEVA-2021-US-1865882

PATIENT
  Age: 55 Year
  Sex: Male

DRUGS (1)
  1. FENTORA [Suspect]
     Active Substance: FENTANYL CITRATE
     Indication: BREAKTHROUGH PAIN
     Dosage: USE TO TAKE 4 TIMES A DAY SO NOW 2 TIMES A DAY
     Route: 065
     Dates: start: 2009

REACTIONS (8)
  - Femur fracture [Unknown]
  - Lower limb fracture [Unknown]
  - Joint injury [Unknown]
  - Diarrhoea [Unknown]
  - Pain [Unknown]
  - Quadriplegia [Unknown]
  - Drug ineffective [Unknown]
  - Dysstasia [Unknown]

NARRATIVE: CASE EVENT DATE: 202006
